FAERS Safety Report 6742409-7 (Version None)
Quarter: 2010Q2

REPORT INFORMATION
  Report Type: 
  Country: None (occurrence: None)
  Receive Date: 20100526
  Receipt Date: 20100520
  Transmission Date: 20101027
  Serious: Yes (Hospitalization, Disabling)
  Sender: FDA-Public Use
  Company Number: PHHO2010CA07720

PATIENT
  Sex: Male

DRUGS (6)
  1. CERTICAN [Suspect]
     Indication: LIVER TRANSPLANT
     Dosage: 1 MG, BID
     Route: 048
     Dates: start: 20100510, end: 20100520
  2. TACROLIMUS [Suspect]
     Indication: LIVER TRANSPLANT
     Dosage: 5 MG, BID
     Route: 048
     Dates: start: 20100407
  3. ASPIRIN [Concomitant]
  4. PREDNISONE TAB [Concomitant]
     Indication: LIVER TRANSPLANT
  5. INSULIN [Concomitant]
     Indication: DIABETES MELLITUS
  6. RANITIDINE [Concomitant]
     Indication: PROPHYLAXIS

REACTIONS (4)
  - RETINAL DETACHMENT [None]
  - RETINAL TEAR [None]
  - VISION BLURRED [None]
  - VITREOUS HAEMORRHAGE [None]
